FAERS Safety Report 8302484-5 (Version None)
Quarter: 2012Q2

REPORT INFORMATION
  Report Type: 
  Country: None (occurrence: None)
  Receive Date: 20120402
  Receipt Date: 20120319
  Transmission Date: 20120825
  Serious: Yes (Death, Hospitalization, Other)
  Sender: FDA-Public Use
  Company Number: ALB-004-12-GB

PATIENT
  Age: 80 Year
  Sex: Female

DRUGS (11)
  1. LACTULOSE [Concomitant]
  2. ALBUNORM 20% (HUMAN ALBUMIN) [Suspect]
     Indication: HYPOVOLAEMIA
     Dosage: 100 ML (2X 1 / D) INTRAVENOUS (NOT OTHERWISE SPECIFIED)
     Route: 042
     Dates: start: 20120127, end: 20120127
  3. OMEPRAZOLE [Concomitant]
  4. ISOSORBIDE MONONITRATE [Concomitant]
  5. HYDROCORTISONE [Concomitant]
  6. ONDANSETRON [Concomitant]
  7. BISOPROLOL FUMARATE [Concomitant]
  8. BENDROFLUAZIDE [Concomitant]
  9. CYCLIZINE [Concomitant]
  10. SIMVASTATIN [Concomitant]
  11. DOXAZOSIN MESYLATE [Concomitant]

REACTIONS (3)
  - HEPATITIS E [None]
  - RENAL FAILURE [None]
  - TRANSMISSION OF AN INFECTIOUS AGENT VIA A MEDICINAL PRODUCT [None]
